FAERS Safety Report 18600391 (Version 1)
Quarter: 2020Q4

REPORT INFORMATION
  Report Type: Spontaneous
  Country: FR (occurrence: FR)
  Receive Date: 20201210
  Receipt Date: 20201210
  Transmission Date: 20210114
  Serious: Yes (Death, Hospitalization)
  Sender: FDA-Public Use
  Company Number: FR-PFIZER INC-2020484245

PATIENT
  Age: 52 Year
  Sex: Male
  Weight: 59 kg

DRUGS (2)
  1. CARBOPLATINE TEVA [Suspect]
     Active Substance: CARBOPLATIN
     Indication: OESOPHAGEAL SQUAMOUS CELL CARCINOMA
     Dosage: 310 MG, WEEKLY
     Route: 042
     Dates: start: 20201028, end: 20201104
  2. PACLITAXEL HOSPIRA [Suspect]
     Active Substance: PACLITAXEL
     Indication: OESOPHAGEAL SQUAMOUS CELL CARCINOMA
     Dosage: 69 MG, WEEKLY
     Route: 042
     Dates: start: 20201028, end: 20201104

REACTIONS (3)
  - Enteritis [Fatal]
  - Off label use [Unknown]
  - Febrile bone marrow aplasia [Fatal]

NARRATIVE: CASE EVENT DATE: 20201028
